FAERS Safety Report 12704300 (Version 1)
Quarter: 2016Q3

REPORT INFORMATION
  Report Type: Spontaneous
  Country: JP (occurrence: JP)
  Receive Date: 20160831
  Receipt Date: 20160831
  Transmission Date: 20161109
  Serious: Yes (Other)
  Sender: FDA-Public Use
  Company Number: JP-ECLAT PHARMACEUTICALS-2016ECL00027

PATIENT
  Age: 52 Year
  Sex: Female

DRUGS (1)
  1. RABECURE [Suspect]
     Active Substance: AMOXICILLIN\CLARITHROMYCIN\RABEPRAZOLE
     Dosage: 1 DOSAGE UNITS, 2X/DAY
     Route: 048
     Dates: start: 201504, end: 201505

REACTIONS (1)
  - Erythema multiforme [Unknown]
